FAERS Safety Report 5846676-3 (Version None)
Quarter: 2008Q3

REPORT INFORMATION
  Report Type: 
  Country: None (occurrence: None)
  Receive Date: 20080815
  Receipt Date: 20080806
  Transmission Date: 20090109
  Serious: Yes (Hospitalization)
  Sender: FDA-Public Use
  Company Number: B0533177A

PATIENT
  Age: 52 Year
  Sex: Female
  Weight: 40 kg

DRUGS (11)
  1. ZINACEF [Suspect]
     Indication: BLOOD CULTURE
     Dosage: 1.5G TWICE PER DAY
     Route: 042
     Dates: start: 20080714, end: 20080715
  2. CLAFORAN [Concomitant]
     Indication: ESCHERICHIA URINARY TRACT INFECTION
     Dosage: 2G THREE TIMES PER DAY
     Route: 042
     Dates: start: 20080712, end: 20080714
  3. ZANTAC [Concomitant]
     Indication: PROPHYLAXIS
     Dosage: 50MG TWICE PER DAY
     Route: 042
     Dates: start: 20080712
  4. GLYPRESSIN [Concomitant]
     Indication: HEPATORENAL SYNDROME
     Dosage: .5MG SIX TIMES PER DAY
     Route: 042
     Dates: start: 20080712
  5. KONAKION [Concomitant]
     Dosage: 10MG PER DAY
     Route: 042
     Dates: start: 20080713
  6. CERNEVIT-12 [Concomitant]
     Indication: VITAMIN SUPPLEMENTATION
     Dosage: 1AMP PER DAY
     Route: 042
     Dates: start: 20080714
  7. ADDAMEL [Concomitant]
     Indication: VITAMIN SUPPLEMENTATION
     Dosage: 1AMP PER DAY
     Route: 042
     Dates: start: 20070714
  8. LASIX [Concomitant]
     Indication: DRUG USE FOR UNKNOWN INDICATION
     Dosage: 60MG PER DAY
     Route: 042
     Dates: start: 20080713, end: 20080714
  9. SOLU-MEDROL [Concomitant]
     Indication: DRUG USE FOR UNKNOWN INDICATION
     Dosage: 60MG PER DAY
     Route: 042
     Dates: start: 20080714, end: 20080714
  10. ACTRAPID [Concomitant]
     Indication: DRUG USE FOR UNKNOWN INDICATION
     Route: 065
     Dates: start: 20080712
  11. DIPIDOLOR [Concomitant]
     Indication: DRUG USE FOR UNKNOWN INDICATION
     Route: 065
     Dates: start: 20070714, end: 20070715

REACTIONS (7)
  - ACUTE HEPATIC FAILURE [None]
  - BLISTER [None]
  - GASTROINTESTINAL HAEMORRHAGE [None]
  - NECROSIS [None]
  - NIKOLSKY'S SIGN [None]
  - RENAL FAILURE ACUTE [None]
  - TOXIC EPIDERMAL NECROLYSIS [None]
